FAERS Safety Report 9016965 (Version 1)
Quarter: 2013Q1

REPORT INFORMATION
  Report Type: Spontaneous
  Country: US (occurrence: None)
  Receive Date: 20130114
  Receipt Date: 20130114
  Transmission Date: 20140127
  Serious: No
  Sender: FDA-Public Use
  Company Number: DL2012-0840

PATIENT
  Sex: Female

DRUGS (3)
  1. MIFEPRISTONE [Suspect]
     Indication: ABORTION INDUCED
     Route: 048
     Dates: start: 20120727
  2. MISO PROSTOL [Suspect]
     Route: 002
     Dates: start: 20120728, end: 20120730
  3. DOXYCYCLINE [Concomitant]

REACTIONS (1)
  - Pregnancy [None]
